FAERS Safety Report 11595244 (Version 1)
Quarter: 2015Q4

REPORT INFORMATION
  Report Type: Spontaneous
  Country: IT (occurrence: IT)
  Receive Date: 20151006
  Receipt Date: 20151006
  Transmission Date: 20160304
  Serious: Yes (Hospitalization, Other)
  Sender: FDA-Public Use
  Company Number: IT-ACCORD-034051

PATIENT
  Age: 50 Year
  Sex: Female
  Weight: 52 kg

DRUGS (8)
  1. TRIMETON [Concomitant]
     Active Substance: CHLORPHENIRAMINE MALEATE
     Indication: PREMEDICATION
     Dosage: STRENGTH: 10 MG/1 ML
     Route: 042
     Dates: start: 20150701, end: 20150701
  2. FARMORUBICINA PFIXER [Suspect]
     Active Substance: EPIRUBICIN HYDROCHLORIDE
     Indication: BREAST NEOPLASM
     Dosage: STRENGTH: 50MG
     Route: 040
     Dates: start: 20150515
  3. RANITIDINE S.A.L.F [Concomitant]
     Indication: PREMEDICATION
     Dosage: STRENGTH: 50 MG/5 ML
     Route: 042
     Dates: start: 20150515, end: 20150701
  4. DEXAMETHASONE HOSPIRA [Concomitant]
     Indication: PREMEDICATION
     Dosage: STRENGTH: 4MG/ML
     Route: 042
     Dates: start: 20150515, end: 20150701
  5. FLUOROURACIL. [Suspect]
     Active Substance: FLUOROURACIL
     Indication: BREAST NEOPLASM
     Dosage: STRENGTH: 50 MG/ML
     Route: 040
     Dates: start: 20150515
  6. ENDOXAN BAXTER [Suspect]
     Active Substance: CYCLOPHOSPHAMIDE
     Indication: BREAST NEOPLASM
     Dosage: STRENGTH: 1 G
     Route: 040
     Dates: start: 20150515
  7. PACLITAXEL TEVA [Suspect]
     Active Substance: PACLITAXEL
     Indication: BREAST NEOPLASM
     Dosage: 12 CYCLES
     Dates: start: 20150820
  8. ONDANSETRON HIKMA [Concomitant]
     Indication: PREMEDICATION
     Dosage: STRENGTH: 8 MG/4 ML
     Route: 042
     Dates: start: 20150515, end: 20150701

REACTIONS (7)
  - Erythema [Unknown]
  - Neutropenia [Unknown]
  - Dyspnoea [Unknown]
  - Abdominal pain [Unknown]
  - Pyrexia [Unknown]
  - Conjunctivitis [Unknown]
  - Hypotension [Unknown]

NARRATIVE: CASE EVENT DATE: 20150701
